FAERS Safety Report 10085564 (Version 1)
Quarter: 2014Q2

REPORT INFORMATION
  Report Type: Spontaneous
  Country: TW (occurrence: TW)
  Receive Date: 20140418
  Receipt Date: 20140418
  Transmission Date: 20141212
  Serious: Yes (Hospitalization, Other)
  Sender: FDA-Public Use
  Company Number: TW-AMGEN INC.-TWNSP2014028189

PATIENT
  Age: 50 Year
  Sex: Female

DRUGS (2)
  1. ENBREL [Suspect]
     Indication: RHEUMATOID ARTHRITIS
     Dosage: 25 MG, BIW
     Route: 058
     Dates: end: 20130130
  2. ENBREL [Suspect]
     Dosage: 25 MG, EVERY FIVE DAYS
     Route: 058
     Dates: start: 20130131

REACTIONS (2)
  - Femur fracture [Recovered/Resolved]
  - Fall [Unknown]
